FAERS Safety Report 9503465 (Version 3)
Quarter: 2013Q4

REPORT INFORMATION
  Report Type: Spontaneous
  Country: JP (occurrence: JP)
  Receive Date: 20130906
  Receipt Date: 20131003
  Transmission Date: 20140711
  Serious: Yes (Other)
  Sender: FDA-Public Use
  Company Number: JP-UCBSA-096951

PATIENT
  Sex: 0

DRUGS (3)
  1. E KEPPRA [Suspect]
     Route: 048
     Dates: start: 201304
  2. SODIUM VALPROATE [Concomitant]
  3. PHENYTOIN [Concomitant]

REACTIONS (4)
  - Pancytopenia [Unknown]
  - Anaemia [Unknown]
  - Neutrophil count decreased [Unknown]
  - White blood cell count decreased [Unknown]
